FAERS Safety Report 13257358 (Version 2)
Quarter: 2017Q1

REPORT INFORMATION
  Report Type: Spontaneous
  Country: US (occurrence: US)
  Receive Date: 20170221
  Receipt Date: 20170310
  Transmission Date: 20170428
  Serious: Yes (Other)
  Sender: FDA-Public Use
  Company Number: US-GILEAD-2017-0258130

PATIENT
  Sex: Male

DRUGS (1)
  1. HARVONI [Suspect]
     Active Substance: LEDIPASVIR\SOFOSBUVIR
     Indication: CHRONIC HEPATITIS C
     Route: 065

REACTIONS (8)
  - Drug ineffective [Unknown]
  - Cough [Unknown]
  - Off label use [Recovered/Resolved]
  - Pneumothorax [Unknown]
  - Treatment failure [Unknown]
  - Hepatitis C [Unknown]
  - Loss of consciousness [Unknown]
  - Localised oedema [Unknown]
